FAERS Safety Report 13738933 (Version 1)
Quarter: 2017Q3

REPORT INFORMATION
  Report Type: Report from Study
  Country: US (occurrence: US)
  Receive Date: 20170710
  Receipt Date: 20170710
  Transmission Date: 20171127
  Serious: No
  Sender: FDA-Public Use
  Company Number: US-SAOL THERAPEUTICS-2017SAO00722

PATIENT
  Age: 44 Year
  Sex: Female

DRUGS (10)
  1. DILAUDID [Suspect]
     Active Substance: HYDROMORPHONE HYDROCHLORIDE
     Dosage: 3.8293 MG, \DAY
     Dates: start: 20160715
  2. DILAUDID [Suspect]
     Active Substance: HYDROMORPHONE HYDROCHLORIDE
     Dosage: 2.4979 MG, \DAY
     Dates: start: 20160715
  3. BACLOFEN. [Suspect]
     Active Substance: BACLOFEN
     Dosage: 124.90 ?G, \DAY
     Route: 037
     Dates: start: 20160715
  4. BUPIVACAINE. [Suspect]
     Active Substance: BUPIVACAINE
     Dosage: 38.346 MG, \DAY
     Dates: start: 20160712, end: 20170715
  5. BUPIVACAINE. [Suspect]
     Active Substance: BUPIVACAINE
     Dosage: 24.979 MG, \DAY
     Route: 037
     Dates: start: 20160715
  6. BUPIVACAINE. [Suspect]
     Active Substance: BUPIVACAINE
     Dosage: 38.293 MG, \DAY
     Dates: start: 20160715
  7. DILAUDID [Suspect]
     Active Substance: HYDROMORPHONE HYDROCHLORIDE
     Dosage: 1.2517 MG, \DAY
     Dates: start: 20160712, end: 20160715
  8. DILAUDID [Suspect]
     Active Substance: HYDROMORPHONE HYDROCHLORIDE
     Dosage: 1.9173 MG, \DAY
     Dates: start: 20160712, end: 20160715
  9. BUPIVACAINE. [Suspect]
     Active Substance: BUPIVACAINE
     Dosage: 25.034 MG, \DAY
     Dates: start: 20150712, end: 20160715
  10. BACLOFEN. [Suspect]
     Active Substance: BACLOFEN
     Dosage: 191.46 ?G, \DAY
     Dates: start: 20160715

REACTIONS (1)
  - Implant site mass [Recovered/Resolved]

NARRATIVE: CASE EVENT DATE: 20160715
